FAERS Safety Report 8113416-7 (Version None)
Quarter: 2012Q1

REPORT INFORMATION
  Report Type: 
  Country: None (occurrence: None)
  Receive Date: 20120203
  Receipt Date: 20120201
  Transmission Date: 20120608
  Serious: Yes (Death, Hospitalization)
  Sender: FDA-Public Use
  Company Number: PHHY2011MX81535

PATIENT
  Sex: Male

DRUGS (2)
  1. RASILEZ HCT [Suspect]
     Indication: HYPERTENSION
     Dosage: 1 DF, (DAILY)
     Route: 048
     Dates: start: 20110701
  2. ARTRIDOL [Concomitant]
     Indication: ARTHRITIS

REACTIONS (12)
  - FAECES DISCOLOURED [None]
  - PRURITUS [None]
  - DISEASE PROGRESSION [None]
  - YELLOW SKIN [None]
  - ABDOMINAL PAIN [None]
  - HEPATIC CIRRHOSIS [None]
  - URINE COLOUR ABNORMAL [None]
  - PYREXIA [None]
  - FATIGUE [None]
  - ASTERIXIS [None]
  - NAUSEA [None]
  - MULTI-ORGAN FAILURE [None]
